FAERS Safety Report 7814408-5 (Version None)
Quarter: 2011Q4

REPORT INFORMATION
  Report Type: 
  Country: None (occurrence: None)
  Receive Date: 20111014
  Receipt Date: 20111004
  Transmission Date: 20120403
  Serious: Yes (Hospitalization, Other)
  Sender: FDA-Public Use
  Company Number: PHHY2011BR88349

PATIENT
  Age: 43 Year
  Sex: Male

DRUGS (12)
  1. EXFORGE [Suspect]
     Indication: HYPERTENSION
     Dosage: 1 DF
  2. MINOXIDIL [Suspect]
     Indication: HYPERTENSION
     Dosage: 100 MG, (PER DAY)
  3. LORAZEPAM [Suspect]
  4. SPIRONOLACTONE [Suspect]
     Indication: HYPERTENSION
     Dosage: 25 MG, (PER DAY)
  5. CLONIDINE [Suspect]
     Dosage: 200 MG,
  6. HYGROTON [Suspect]
     Indication: HYPERTENSION
     Dosage: 25 MG
  7. CLONIDINE [Suspect]
     Indication: HYPERTENSION
     Dosage: 300 MG, (PER DAY)
  8. ATENOLOL [Suspect]
     Indication: HYPERTENSION
     Dosage: 100 MG, (PER DAY)
  9. RASILEZ [Suspect]
     Indication: HYPERTENSION
     Dosage: 300 MG, UNK
  10. DIOVAN [Suspect]
     Indication: HYPERTENSION
     Dosage: 320 MG, UNK
  11. METHYLDOPA [Suspect]
     Indication: HYPERTENSION
     Dosage: 1500 MG, (PER DAY)
  12. AMLODIPINE [Suspect]
     Indication: HYPERTENSION
     Dosage: 15 MG

REACTIONS (4)
  - HYPERTENSION [None]
  - ANGIOPATHY [None]
  - NEPHROPATHY [None]
  - BLOOD PRESSURE INCREASED [None]
